FAERS Safety Report 25236617 (Version 2)
Quarter: 2025Q2

REPORT INFORMATION
  Report Type: Spontaneous
  Country: US (occurrence: US)
  Receive Date: 20250424
  Receipt Date: 20250429
  Transmission Date: 20250717
  Serious: No
  Sender: BAYER HEALTHCARE PHARMACEUTICALS INC.
  Company Number: US-BAYER-2025A054835

PATIENT
  Sex: Female

DRUGS (1)
  1. ESTRADIOL [Suspect]
     Active Substance: ESTRADIOL
     Dosage: 0.1 MG, QD
     Route: 062

REACTIONS (4)
  - Application site irritation [None]
  - Device adhesion issue [None]
  - Wrong technique in device usage process [None]
  - Device physical property issue [None]
